FAERS Safety Report 8345450-6 (Version None)
Quarter: 2012Q2

REPORT INFORMATION
  Report Type: 
  Country: None (occurrence: None)
  Receive Date: 20120508
  Receipt Date: 20120430
  Transmission Date: 20120825
  Serious: Yes (Hospitalization)
  Sender: FDA-Public Use
  Company Number: KR-BAXTER-2012BAX003132

PATIENT
  Sex: Male
  Weight: 60 kg

DRUGS (5)
  1. ACERTIL [Concomitant]
     Indication: HYPERTENSION
     Route: 048
     Dates: start: 20101101
  2. FERROUS SULFATE TAB [Concomitant]
     Route: 048
     Dates: start: 20060821
  3. TORSEMIDE [Concomitant]
     Route: 048
     Dates: start: 20080522
  4. DIANEAL PD-2 W/ DEXTROSE 1.5% [Suspect]
  5. DIANEAL PD-2 W/ DEXTROSE 1.5% [Suspect]
     Route: 033

REACTIONS (2)
  - HERNIA [None]
  - ABDOMINAL DISTENSION [None]
